FAERS Safety Report 10713160 (Version 2)
Quarter: 2015Q1

REPORT INFORMATION
  Report Type: Spontaneous
  Country: JP (occurrence: JP)
  Receive Date: 20150115
  Receipt Date: 20150316
  Transmission Date: 20150721
  Serious: Yes (Death)
  Sender: FDA-Public Use
  Company Number: JP-TEVA-534357ISR

PATIENT
  Age: 95 Year
  Sex: Female
  Weight: 41 kg

DRUGS (6)
  1. E-FEN BUCCAL [Suspect]
     Active Substance: FENTANYL CITRATE
     Dosage: 50 MICROGRAM DAILY;
     Route: 002
     Dates: start: 20141116, end: 20141119
  2. NITRODERM [Concomitant]
     Active Substance: NITROGLYCERIN
     Dosage: 25 MICROGRAM DAILY;
  3. E-FEN BUCCAL [Suspect]
     Active Substance: FENTANYL CITRATE
     Indication: BREAKTHROUGH PAIN
     Dosage: 50 MICROGRAM DAILY;
     Route: 002
     Dates: start: 20141107, end: 20141108
  4. FENTOS [Concomitant]
     Active Substance: FENTANYL
     Indication: CANCER PAIN
     Dosage: .5 MILLIGRAM DAILY;
     Dates: start: 20141104, end: 20141111
  5. E-FEN BUCCAL [Suspect]
     Active Substance: FENTANYL CITRATE
     Dosage: 0-100 MICROGRAM
     Route: 002
     Dates: start: 20141109, end: 20141115
  6. FENTOS [Concomitant]
     Active Substance: FENTANYL
     Dosage: .5 MILLIGRAM DAILY;
     Dates: start: 20141112, end: 20141128

REACTIONS (1)
  - Hepatic cancer [Fatal]

NARRATIVE: CASE EVENT DATE: 20141128
